FAERS Safety Report 8392535-4 (Version None)
Quarter: 2012Q2

REPORT INFORMATION
  Report Type: 
  Country: None (occurrence: None)
  Receive Date: 20120529
  Receipt Date: 20120517
  Transmission Date: 20120825
  Serious: Yes (Hospitalization)
  Sender: FDA-Public Use
  Company Number: US-MERCK-1201USA02284

PATIENT
  Age: 53 Year
  Sex: Female
  Weight: 58 kg

DRUGS (13)
  1. FOSAMAX [Suspect]
     Route: 048
     Dates: end: 20100101
  2. PREMPRO [Concomitant]
     Route: 065
  3. FOSAMAX [Suspect]
     Indication: OSTEOPOROSIS
     Route: 048
     Dates: start: 20010601, end: 20070601
  4. FOSAMAX [Suspect]
     Route: 048
     Dates: start: 19970901, end: 20010601
  5. BONIVA [Suspect]
     Indication: OSTEOPOROSIS
     Route: 065
     Dates: start: 20070601, end: 20100101
  6. NORPRAMIN [Concomitant]
     Route: 065
     Dates: start: 19970519
  7. MIACALCIN [Concomitant]
     Route: 065
  8. VITAMINS (UNSPECIFIED) [Concomitant]
     Route: 065
  9. ZANAFLEX [Concomitant]
     Route: 065
     Dates: start: 20020314, end: 20061208
  10. FOSAMAX [Suspect]
     Route: 048
  11. CALCIUM (UNSPECIFIED) [Concomitant]
     Route: 065
  12. VITAMIN D (UNSPECIFIED) [Concomitant]
     Route: 065
  13. DEPO-MEDROL [Concomitant]
     Route: 065
     Dates: start: 20010621

REACTIONS (24)
  - FEMUR FRACTURE [None]
  - CORONARY ARTERY DISEASE [None]
  - ANAEMIA [None]
  - ABDOMINAL DISCOMFORT [None]
  - BURSITIS [None]
  - PARAESTHESIA [None]
  - NASAL DRYNESS [None]
  - DRUG HYPERSENSITIVITY [None]
  - DRUG INEFFECTIVE [None]
  - THROMBOSIS [None]
  - CAROTID ARTERY OCCLUSION [None]
  - HYPERTENSION [None]
  - TYPE 2 DIABETES MELLITUS [None]
  - HYPOTHYROIDISM [None]
  - WOUND HAEMATOMA [None]
  - ADVERSE EVENT [None]
  - MUSCULOSKELETAL DISORDER [None]
  - ARTHRALGIA [None]
  - GASTROOESOPHAGEAL REFLUX DISEASE [None]
  - COLONIC POLYP [None]
  - VIRAL INFECTION [None]
  - LOW TURNOVER OSTEOPATHY [None]
  - WRIST FRACTURE [None]
  - BACK PAIN [None]
